FAERS Safety Report 8838694 (Version 3)
Quarter: 2012Q4

REPORT INFORMATION
  Report Type: 
  Country: US (occurrence: US)
  Receive Date: 20121012
  Receipt Date: 20121130
  Transmission Date: 20130627
  Serious: Yes (Other)
  Sender: FDA-Public Use
  Company Number: US-PFIZER INC-2012250112

PATIENT
  Age: 52 Year
  Sex: Male
  Weight: 92.52 kg

DRUGS (3)
  1. VIAGRA [Suspect]
     Indication: ERECTILE DYSFUNCTION
     Dosage: 100 mg, as needed
     Route: 048
     Dates: start: 2004
  2. NORVASC [Concomitant]
     Indication: BLOOD PRESSURE HIGH
     Dosage: 5 mg, daily in the morning
  3. FLOMAX [Concomitant]
     Indication: PROSTATIC DISORDER
     Dosage: 4.5 mg, daily

REACTIONS (3)
  - Vein disorder [Unknown]
  - Drug ineffective [Unknown]
  - Product quality issue [Unknown]
